FAERS Safety Report 23647242 (Version 1)
Quarter: 2024Q1

REPORT INFORMATION
  Report Type: Spontaneous
  Country: FR (occurrence: FR)
  Receive Date: 20240319
  Receipt Date: 20240319
  Transmission Date: 20240410
  Serious: Yes (Hospitalization, Other)
  Sender: FDA-Public Use
  Company Number: None

PATIENT
  Age: 51 Year
  Sex: Male

DRUGS (3)
  1. OLANZAPINE PAMOATE [Suspect]
     Active Substance: OLANZAPINE PAMOATE
     Indication: Schizophrenia
     Dosage: POWDER AND?SOLVENT FOR SUSPENSION FOR INJECTION ?SUSTAINED RELEASE
     Route: 030
     Dates: start: 20240130, end: 20240130
  2. RILMENIDINE [Concomitant]
     Active Substance: RILMENIDINE
     Dosage: DAILY DOSE: 1 MILLIGRAM
     Route: 048
  3. LERCANIDIPINE HYDROCHLORIDE [Concomitant]
     Active Substance: LERCANIDIPINE HYDROCHLORIDE
     Dosage: DAILY DOSE: 20 MILLIGRAM
     Route: 048

REACTIONS (4)
  - Post-injection delirium sedation syndrome [Recovered/Resolved]
  - Hyperleukocytosis [Unknown]
  - Hyperglycaemia [Unknown]
  - Aspartate aminotransferase increased [Unknown]

NARRATIVE: CASE EVENT DATE: 20240130
